FAERS Safety Report 13555596 (Version 2)
Quarter: 2017Q2

REPORT INFORMATION
  Report Type: Spontaneous
  Country: DE (occurrence: DE)
  Receive Date: 20170517
  Receipt Date: 20170607
  Transmission Date: 20170830
  Serious: Yes (Hospitalization, Other)
  Sender: FDA-Public Use
  Company Number: DE-JNJFOC-20170512291

PATIENT
  Age: 64 Year
  Sex: Male
  Weight: 95 kg

DRUGS (1)
  1. STELARA [Suspect]
     Active Substance: USTEKINUMAB
     Indication: PSORIASIS
     Dosage: APPROXIMATE TOTAL NUMBER OF INJECTIONS ARE 10 - 11
     Route: 058
     Dates: start: 20160422, end: 20161222

REACTIONS (6)
  - Laryngitis [Not Recovered/Not Resolved]
  - Renal impairment [Unknown]
  - Aortic aneurysm [Unknown]
  - Bronchitis [Not Recovered/Not Resolved]
  - Coronary arterial stent insertion [Unknown]
  - Pharyngitis [Not Recovered/Not Resolved]

NARRATIVE: CASE EVENT DATE: 201604
